FAERS Safety Report 7574570-9 (Version None)
Quarter: 2011Q2

REPORT INFORMATION
  Report Type: 
  Country: None (occurrence: None)
  Receive Date: 20110627
  Receipt Date: 20110617
  Transmission Date: 20111010
  Serious: Yes (Hospitalization)
  Sender: FDA-Public Use
  Company Number: PHHY2011JP53689

PATIENT
  Age: 79 Year
  Sex: Male

DRUGS (4)
  1. METHYCOBAL [Concomitant]
     Dosage: 1500 UG, QD
     Route: 048
     Dates: start: 20110613, end: 20110616
  2. MUCOSTA [Concomitant]
     Dosage: 300 MG, QD
     Route: 048
  3. LOXIPAIN [Concomitant]
     Dosage: 180 MG, QD
     Route: 048
     Dates: start: 20110613, end: 20110616
  4. FAMVIR [Suspect]
     Indication: HERPES ZOSTER
     Dosage: 1500 MG, QD
     Route: 048
     Dates: start: 20110613, end: 20110616

REACTIONS (1)
  - ALTERED STATE OF CONSCIOUSNESS [None]
